FAERS Safety Report 6496303-X (Version None)
Quarter: 2009Q4

REPORT INFORMATION
  Report Type: 
  Country: None (occurrence: None)
  Receive Date: 20091214
  Receipt Date: 20081218
  Transmission Date: 20100525
  Serious: No
  Sender: FDA-Public Use
  Company Number: US-ABBOTT-08P-163-0493804-00

PATIENT
  Sex: Female
  Weight: 99.88 kg

DRUGS (2)
  1. VICODIN ES [Suspect]
     Indication: PAIN
     Dosage: 7.5 MG/750 MG  2-3 PER DAY
  2. ANAPROX [Concomitant]
     Indication: DRUG USE FOR UNKNOWN INDICATION

REACTIONS (1)
  - DRUG INEFFECTIVE [None]
